FAERS Safety Report 9781794 (Version 1)
Quarter: 2013Q4

REPORT INFORMATION
  Report Type: Spontaneous
  Country: US (occurrence: US)
  Receive Date: 20131225
  Receipt Date: 20131225
  Transmission Date: 20140711
  Serious: Yes (Hospitalization)
  Sender: FDA-Public Use
  Company Number: US-BIOGENIDEC-2013BI123126

PATIENT
  Age: 44 Year
  Sex: Female

DRUGS (2)
  1. TECFIDERA [Suspect]
     Indication: RELAPSING-REMITTING MULTIPLE SCLEROSIS
     Route: 048
  2. AVONEX [Concomitant]
     Indication: MULTIPLE SCLEROSIS
     Route: 030
     Dates: start: 20050806

REACTIONS (3)
  - Cholecystectomy [Unknown]
  - Gastric haemorrhage [Unknown]
  - Abdominal pain [Unknown]
